FAERS Safety Report 19229940 (Version 1)
Quarter: 2021Q2

REPORT INFORMATION
  Report Type: Spontaneous
  Country: US (occurrence: US)
  Receive Date: 20210506
  Receipt Date: 20210506
  Transmission Date: 20210717
  Serious: No
  Sender: FDA-Public Use
  Company Number: US-PURDUE PHARMA-USA-2021-0206794

PATIENT
  Sex: Male
  Weight: 62 kg

DRUGS (1)
  1. LIDOCAINE. [Suspect]
     Active Substance: LIDOCAINE
     Indication: BACK PAIN
     Dosage: 1 PATCH, NOCTE
     Route: 062
     Dates: start: 202009

REACTIONS (3)
  - Product size issue [Unknown]
  - Insomnia [Unknown]
  - Therapeutic product effect decreased [Unknown]
